FAERS Safety Report 17431282 (Version 2)
Quarter: 2020Q1

REPORT INFORMATION
  Report Type: Spontaneous
  Country: JP (occurrence: JP)
  Receive Date: 20200218
  Receipt Date: 20200320
  Transmission Date: 20200409
  Serious: Yes (Hospitalization)
  Sender: FDA-Public Use
  Company Number: JP-ROCHE-2524722

PATIENT
  Age: 76 Year
  Sex: Female
  Weight: 42 kg

DRUGS (8)
  1. MEDROL [Suspect]
     Active Substance: METHYLPREDNISOLONE
     Indication: PRODUCT USED FOR UNKNOWN INDICATION
     Route: 048
     Dates: start: 20100822
  2. CELECOX [Concomitant]
     Active Substance: CELECOXIB
     Dosage: DOSE INTERVAL UNCERTAINTY
     Route: 048
     Dates: start: 20100822
  3. RIMATIL [Concomitant]
     Active Substance: BUCILLAMINE
     Dosage: DOSE INTERVAL UNCERTAINTY
     Route: 065
     Dates: start: 20100822
  4. GASLON [Concomitant]
     Active Substance: IRSOGLADINE MALEATE
     Dosage: DOSE INTERVAL UNCERTAINTY
     Route: 065
     Dates: start: 20100822
  5. METOLATE [Suspect]
     Active Substance: METHOTREXATE
     Route: 065
     Dates: start: 20190827
  6. ACTEMRA [Suspect]
     Active Substance: TOCILIZUMAB
     Dosage: DOSAGE IS UNCERTAIN.
     Route: 041
     Dates: start: 20140313, end: 20180226
  7. ACTEMRA [Suspect]
     Active Substance: TOCILIZUMAB
     Indication: RHEUMATOID ARTHRITIS
     Dosage: DOSAGE IS UNCERTAIN.
     Route: 041
     Dates: start: 20110404, end: 20131015
  8. METOLATE [Suspect]
     Active Substance: METHOTREXATE
     Indication: PRODUCT USED FOR UNKNOWN INDICATION
     Route: 065

REACTIONS (2)
  - Chronic sinusitis [Recovering/Resolving]
  - Diverticulum intestinal haemorrhagic [Recovered/Resolved]

NARRATIVE: CASE EVENT DATE: 20131220
